FAERS Safety Report 6840747-0 (Version None)
Quarter: 2010Q3

REPORT INFORMATION
  Report Type: 
  Country: None (occurrence: None)
  Receive Date: 20100714
  Receipt Date: 20060801
  Transmission Date: 20110219
  Serious: No
  Sender: FDA-Public Use
  Company Number: US-PFIZER INC-2006094737

PATIENT
  Sex: Male
  Weight: 104.33 kg

DRUGS (1)
  1. CHANTIX [Suspect]
     Indication: SMOKING CESSATION THERAPY
     Route: 065
     Dates: start: 20060701

REACTIONS (4)
  - FOOD CRAVING [None]
  - HYPERPHAGIA [None]
  - TOBACCO USER [None]
  - WEIGHT DECREASED [None]
